FAERS Safety Report 7867491-5 (Version None)
Quarter: 2011Q4

REPORT INFORMATION
  Report Type: 
  Country: None (occurrence: None)
  Receive Date: 20111028
  Receipt Date: 20111017
  Transmission Date: 20120403
  Serious: Yes (Other)
  Sender: FDA-Public Use
  Company Number: PHHY2011BR92650

PATIENT
  Sex: Male

DRUGS (2)
  1. TEGRETOL [Suspect]
  2. RASILEZ [Suspect]
     Dosage: 300 MG

REACTIONS (2)
  - BLOOD PRESSURE INCREASED [None]
  - RENAL DISORDER [None]
